FAERS Safety Report 20876394 (Version 1)
Quarter: 2022Q2

REPORT INFORMATION
  Report Type: Spontaneous
  Country: DE (occurrence: DE)
  Receive Date: 20220526
  Receipt Date: 20220526
  Transmission Date: 20220721
  Serious: Yes (Other)
  Sender: FDA-Public Use
  Company Number: None

PATIENT
  Age: 68 Year
  Sex: Male
  Weight: 117 kg

DRUGS (2)
  1. LUSPATERCEPT [Suspect]
     Active Substance: LUSPATERCEPT
     Indication: Myelodysplastic syndrome
     Dosage: 120-200 MG
     Route: 058
     Dates: start: 20200818
  2. LUSPATERCEPT [Suspect]
     Active Substance: LUSPATERCEPT
     Indication: Refractory anaemia with ringed sideroblasts

REACTIONS (1)
  - Thrombocytosis [Not Recovered/Not Resolved]

NARRATIVE: CASE EVENT DATE: 20210506
